FAERS Safety Report 17554494 (Version 1)
Quarter: 2020Q1

REPORT INFORMATION
  Report Type: Spontaneous
  Country: US (occurrence: US)
  Receive Date: 20200309
  Receipt Date: 20200309
  Transmission Date: 20200409
  Serious: Yes (Disabling)
  Sender: FDA-Public Use
  Company Number: None

PATIENT
  Age: 60 Year
  Sex: Female
  Weight: 77.11 kg

DRUGS (11)
  1. HYDROCLOROTHIAZIDE [Concomitant]
     Active Substance: HYDROCHLOROTHIAZIDE
  2. IBRANCE [Concomitant]
     Active Substance: PALBOCICLIB
  3. EXEMESTANE. [Concomitant]
     Active Substance: EXEMESTANE
  4. PROPANOLOL [Concomitant]
     Active Substance: PROPRANOLOL HYDROCHLORIDE
  5. NORCO [Concomitant]
     Active Substance: ACETAMINOPHEN\HYDROCODONE BITARTRATE
  6. POTASSIUM [Concomitant]
     Active Substance: POTASSIUM
  7. PRAMIPEXOLE. [Concomitant]
     Active Substance: PRAMIPEXOLE
  8. DULOXEINE [Concomitant]
  9. CALCIUM [Concomitant]
     Active Substance: CALCIUM
  10. VITAMIN D [Concomitant]
     Active Substance: VITAMIN D NOS
  11. XGEVA [Suspect]
     Active Substance: DENOSUMAB
     Indication: BREAST CANCER METASTATIC
     Dosage: ?          QUANTITY:1 SHOT;OTHER ROUTE:INJECTION?
     Dates: start: 201206, end: 2018

REACTIONS (2)
  - Pain [None]
  - Osteonecrosis of jaw [None]

NARRATIVE: CASE EVENT DATE: 20180601
